FAERS Safety Report 17404876 (Version 1)
Quarter: 2020Q1

REPORT INFORMATION
  Report Type: Not Available
  Country: US (occurrence: US)
  Receive Date: 20200211
  Receipt Date: 20200211
  Transmission Date: 20200409
  Serious: Yes (Hospitalization)
  Sender: FDA-Public Use
  Company Number: US-NEUROCRINE BIOSCIENCES INC.-2020NBI00388

PATIENT
  Age: 73 Year
  Sex: Male

DRUGS (4)
  1. INGREZZA [Suspect]
     Active Substance: VALBENAZINE
     Indication: TARDIVE DYSKINESIA
     Route: 048
  2. AMBIEN [Concomitant]
     Active Substance: ZOLPIDEM TARTRATE
     Route: 048
  3. ZOCOR [Concomitant]
     Active Substance: SIMVASTATIN
     Route: 048
  4. RISPERDAL [Concomitant]
     Active Substance: RISPERIDONE
     Route: 048

REACTIONS (1)
  - Sarcoma [Not Recovered/Not Resolved]

NARRATIVE: CASE EVENT DATE: 20200131
